FAERS Safety Report 6673760-7 (Version None)
Quarter: 2010Q2

REPORT INFORMATION
  Report Type: 
  Country: None (occurrence: None)
  Receive Date: 20100408
  Receipt Date: 20100401
  Transmission Date: 20101027
  Serious: Yes (Hospitalization)
  Sender: FDA-Public Use
  Company Number: FR-ABBOTT-10P-056-0636212-00

PATIENT
  Age: 24 Year
  Sex: Male

DRUGS (3)
  1. ZECLAR TABLETS [Suspect]
     Indication: DRUG USE FOR UNKNOWN INDICATION
     Route: 048
     Dates: start: 20100219, end: 20100221
  2. SPIFEN [Suspect]
     Indication: DRUG USE FOR UNKNOWN INDICATION
     Dosage: ONE SINGLE INTAKE
     Route: 048
     Dates: start: 20100218, end: 20100218
  3. SPIFEN [Suspect]
     Dosage: ONE SINGLE INTAKE
     Dates: start: 20100218, end: 20100218

REACTIONS (5)
  - CONJUNCTIVITIS [None]
  - DRUG ERUPTION [None]
  - KERATITIS [None]
  - MALAISE [None]
  - PYREXIA [None]
